FAERS Safety Report 11231699 (Version 2)
Quarter: 2015Q3

REPORT INFORMATION
  Report Type: Spontaneous
  Country: DE (occurrence: DE)
  Receive Date: 20150701
  Receipt Date: 20150716
  Transmission Date: 20151125
  Serious: Yes (Other)
  Sender: FDA-Public Use
  Company Number: DE-GLAXOSMITHKLINE-DE2015GSK094620

PATIENT
  Age: 88 Year
  Sex: Male
  Weight: 66 kg

DRUGS (12)
  1. MOLSIKET [Concomitant]
     Dosage: 8 MG, U
     Route: 048
  2. SIMVA HEXAL [Concomitant]
     Dosage: 30 MG, U
     Route: 048
  3. ISDN RATIOPHARM [Concomitant]
     Dosage: 60 MG, U
     Route: 048
  4. L-THYROX HEXAL [Concomitant]
     Dosage: 25 UG, U
     Route: 048
  5. PANTOPRAZOL RATIOPHARM [Concomitant]
     Dosage: 40 MG, U
     Route: 048
  6. SPIRONOLACTON 1A PHARMA [Concomitant]
     Dosage: 50 MG, U
     Route: 048
  7. FALITHROM [Concomitant]
     Active Substance: PHENPROCOUMON
     Dosage: 100 MG, U
     Route: 048
  8. TORASEMID 1A PHARMA [Concomitant]
     Active Substance: TORSEMIDE
     Dosage: 10 MG, U
     Route: 048
  9. METOPROLOL 1A PHARMA [Concomitant]
     Active Substance: METOPROLOL
     Dosage: 100 MG, U
     Route: 048
  10. ASS HEUMANN [Concomitant]
     Dosage: 100 MG, U
     Route: 048
  11. DUODART [Suspect]
     Active Substance: DUTASTERIDE\TAMSULOSIN
     Indication: BENIGN PROSTATIC HYPERPLASIA
     Dosage: 0.9 MG, QD
     Route: 048
     Dates: start: 20130527, end: 20140717
  12. RANEXA [Concomitant]
     Active Substance: RANOLAZINE
     Dosage: 375 MG, U
     Route: 048

REACTIONS (3)
  - Transurethral prostatectomy [Recovered/Resolved]
  - Urinary retention [Recovered/Resolved]
  - Residual urine volume increased [Recovered/Resolved]

NARRATIVE: CASE EVENT DATE: 20140717
